FAERS Safety Report 5044789-X (Version None)
Quarter: 2006Q3

REPORT INFORMATION
  Report Type: 
  Country: None (occurrence: None)
  Receive Date: 20060707
  Receipt Date: 20060623
  Transmission Date: 20061208
  Serious: Yes (Other)
  Sender: FDA-Public Use
  Company Number: FRWYE771623JUN06

PATIENT
  Sex: Female

DRUGS (2)
  1. ENBREL [Suspect]
     Indication: DRUG USE FOR UNKNOWN INDICATION
     Dosage: UNKNOWN
     Route: 058
     Dates: start: 20050301
  2. METHOTREXATE [Suspect]
     Indication: DRUG USE FOR UNKNOWN INDICATION
     Dosage: UNKNOWN
     Route: 048
     Dates: start: 20050301

REACTIONS (1)
  - BREAST CANCER FEMALE [None]
